FAERS Safety Report 25012156 (Version 4)
Quarter: 2025Q2

REPORT INFORMATION
  Report Type: Report from Study
  Country: US (occurrence: US)
  Receive Date: 20250226
  Receipt Date: 20250520
  Transmission Date: 20250716
  Serious: Yes (Other)
  Sender: UCB
  Company Number: US-UCBSA-2025004414

PATIENT
  Sex: Female

DRUGS (1)
  1. BIMEKIZUMAB [Suspect]
     Active Substance: BIMEKIZUMAB
     Indication: Psoriatic arthropathy
     Dosage: 160 MILLIGRAM, EV 4 WEEKS
     Route: 058
     Dates: start: 20241023

REACTIONS (5)
  - Psoriatic arthropathy [Recovering/Resolving]
  - Injection site swelling [Recovering/Resolving]
  - Injection site urticaria [Recovering/Resolving]
  - Injection site pain [Recovering/Resolving]
  - Dental cleaning [Recovering/Resolving]

NARRATIVE: CASE EVENT DATE: 20250101
